FAERS Safety Report 9063722 (Version 1)
Quarter: 2013Q1

REPORT INFORMATION
  Report Type: Report from Study
  Country: US (occurrence: US)
  Receive Date: 20130131
  Receipt Date: 20130131
  Transmission Date: 20140127
  Serious: No
  Sender: FDA-Public Use
  Company Number: US-ABBOTT-12P-163-1000184-00

PATIENT
  Age: 37 Year
  Sex: Female

DRUGS (5)
  1. HUMIRA [Suspect]
     Indication: CROHN^S DISEASE
     Route: 058
     Dates: start: 20120823, end: 20120823
  2. HUMIRA [Suspect]
     Dates: start: 201210, end: 201210
  3. HUMIRA [Suspect]
  4. HUMIRA [Suspect]
  5. TYLENOL PM [Concomitant]
     Indication: INSOMNIA
     Dosage: AT BEDTIME

REACTIONS (7)
  - Drug dose omission [Unknown]
  - Injection site pain [Recovering/Resolving]
  - Injection site pain [Recovering/Resolving]
  - Headache [Recovered/Resolved]
  - Skin wound [Recovering/Resolving]
  - Impaired healing [Recovering/Resolving]
  - Injection site reaction [Recovered/Resolved with Sequelae]
